FAERS Safety Report 11352663 (Version 1)
Quarter: 2015Q3

REPORT INFORMATION
  Report Type: Spontaneous
  Country: US (occurrence: US)
  Receive Date: 20150807
  Receipt Date: 20150807
  Transmission Date: 20151125
  Serious: No
  Sender: FDA-Public Use
  Company Number: US-JNJFOC-20150422647

PATIENT
  Age: 58 Year
  Sex: Female
  Weight: 66.68 kg

DRUGS (7)
  1. WOMENS ROGAINE [Suspect]
     Active Substance: MINOXIDIL
     Indication: ALOPECIA
     Route: 061
     Dates: start: 20150423
  2. VITAMIN B12 [Concomitant]
     Active Substance: CYANOCOBALAMIN
     Indication: ROUTINE HEALTH MAINTENANCE
     Dosage: 1000 MC
     Route: 065
  3. FISH OIL [Concomitant]
     Active Substance: FISH OIL
     Indication: VITAMIN SUPPLEMENTATION
     Dosage: 500 MG
     Route: 065
  4. WOMENS ROGAINE [Suspect]
     Active Substance: MINOXIDIL
     Route: 061
  5. BIOTIN [Concomitant]
     Active Substance: BIOTIN
     Indication: ROUTINE HEALTH MAINTENANCE
     Dosage: 1000 MCG
     Route: 065
  6. ALLEGRA [Concomitant]
     Active Substance: FEXOFENADINE HYDROCHLORIDE
     Indication: MULTIPLE ALLERGIES
     Dosage: 180 MG
     Route: 065
  7. VIVISCAL HAIR SUPPLEMENT [Concomitant]
     Indication: HAIR GROWTH ABNORMAL
     Route: 065

REACTIONS (2)
  - Dandruff [Not Recovered/Not Resolved]
  - Skin irritation [Not Recovered/Not Resolved]

NARRATIVE: CASE EVENT DATE: 20150425
